FAERS Safety Report 12741549 (Version 1)
Quarter: 2016Q3

REPORT INFORMATION
  Report Type: Spontaneous
  Country: US (occurrence: US)
  Receive Date: 20160914
  Receipt Date: 20160914
  Transmission Date: 20161109
  Serious: No
  Sender: FDA-Public Use
  Company Number: PHHY2016US126430

PATIENT
  Age: 19 Year
  Sex: Female

DRUGS (1)
  1. CAMBIA [Suspect]
     Active Substance: DICLOFENAC POTASSIUM
     Indication: PRODUCT USED FOR UNKNOWN INDICATION
     Dosage: 1 PACKET SINGLE
     Route: 048
     Dates: start: 20160524, end: 20160526

REACTIONS (1)
  - Drug ineffective [Unknown]

NARRATIVE: CASE EVENT DATE: 20160526
